FAERS Safety Report 6336167-8 (Version None)
Quarter: 2009Q3

REPORT INFORMATION
  Report Type: 
  Country: None (occurrence: None)
  Receive Date: 20090828
  Receipt Date: 20090818
  Transmission Date: 20100115
  Serious: Yes (Other)
  Sender: FDA-Public Use
  Company Number: ADR14422009

PATIENT
  Sex: Female

DRUGS (3)
  1. CITALOPRAM HYDROBROMIDE [Suspect]
     Indication: ANXIETY
     Dosage: 20MG, ORAL
     Route: 048
     Dates: start: 20051201, end: 20080609
  2. LEVOTHYROXINE [Concomitant]
  3. ZOPICLONE [Concomitant]

REACTIONS (1)
  - INCREASED TENDENCY TO BRUISE [None]
